FAERS Safety Report 10166627 (Version 1)
Quarter: 2014Q2

REPORT INFORMATION
  Report Type: Report from Study
  Country: US (occurrence: US)
  Receive Date: 20140512
  Receipt Date: 20140512
  Transmission Date: 20141212
  Serious: Yes (Other)
  Sender: FDA-Public Use
  Company Number: US-JNJFOC-20140502828

PATIENT
  Age: 83 Year
  Sex: Female
  Weight: 83.46 kg

DRUGS (8)
  1. XARELTO [Suspect]
     Indication: ATRIAL FIBRILLATION
     Dosage: WITH EVENING MEAL
     Route: 048
     Dates: start: 20140415
  2. XARELTO [Suspect]
     Indication: CEREBROVASCULAR ACCIDENT PROPHYLAXIS
     Dosage: WITH EVENING MEAL
     Route: 048
     Dates: start: 20140415
  3. DILTIAZEM ER [Suspect]
     Indication: ATRIAL FIBRILLATION
     Route: 048
     Dates: start: 20140415
  4. TENORMIN [Concomitant]
     Indication: HEART RATE
     Route: 048
  5. TENORMIN [Concomitant]
     Indication: BLOOD PRESSURE
     Route: 048
  6. DIOVAN [Concomitant]
     Indication: BLOOD PRESSURE
     Route: 048
  7. XANAX [Concomitant]
     Indication: SLEEP DISORDER
     Route: 048
  8. LEVOTHYROXINE [Concomitant]
     Indication: THYROID DISORDER
     Route: 048

REACTIONS (4)
  - Blood pressure decreased [Not Recovered/Not Resolved]
  - Chest pain [Not Recovered/Not Resolved]
  - Non-cardiac chest pain [Recovering/Resolving]
  - Dyspepsia [Recovered/Resolved]
